FAERS Safety Report 15107387 (Version 1)
Quarter: 2018Q3

REPORT INFORMATION
  Report Type: Report from Study
  Country: RS (occurrence: RS)
  Receive Date: 20180704
  Receipt Date: 20180704
  Transmission Date: 20181010
  Serious: Yes (Other)
  Sender: FDA-Public Use
  Company Number: RS-BRISTOL-MYERS SQUIBB COMPANY-BMS-2018-061971

PATIENT
  Sex: Female

DRUGS (2)
  1. PRAVASTATIN SODIUM. [Suspect]
     Active Substance: PRAVASTATIN SODIUM
     Indication: UMBILICAL CORD ABNORMALITY
     Dosage: 40 MG, QD
     Route: 048
  2. L?ARGININE                         /00126101/ [Suspect]
     Active Substance: ARGININE
     Indication: UMBILICAL CORD ABNORMALITY
     Dosage: 1.5 G, QD
     Route: 048

REACTIONS (5)
  - Product use in unapproved indication [Unknown]
  - Premature delivery [Unknown]
  - Maternal exposure during pregnancy [Recovered/Resolved]
  - Twin pregnancy [Unknown]
  - Product use issue [Unknown]
